FAERS Safety Report 21524658 (Version 2)
Quarter: 2022Q4

REPORT INFORMATION
  Report Type: Spontaneous
  Country: US (occurrence: US)
  Receive Date: 20221030
  Receipt Date: 20221209
  Transmission Date: 20230112
  Serious: No
  Sender: FDA-Public Use
  Company Number: US-BRISTOL-MYERS SQUIBB COMPANY-2022-128725

PATIENT
  Age: 67 Year
  Sex: Female

DRUGS (1)
  1. POMALYST [Suspect]
     Active Substance: POMALIDOMIDE
     Indication: Metastases to bone
     Dosage: TAKE 1 CAPSULE BY MOUTH DAILY FOR 21 CONSECUTIVE DAYS, FOLLOWED BY 7 DAYS OFF. REPEAT EVERY 28 DAYS
     Route: 048
     Dates: start: 20220510

REACTIONS (5)
  - Dizziness [Unknown]
  - Fatigue [Unknown]
  - Tremor [Unknown]
  - Abdominal discomfort [Unknown]
  - Palpitations [Unknown]
